FAERS Safety Report 5610959-2 (Version None)
Quarter: 2008Q1

REPORT INFORMATION
  Report Type: 
  Country: None (occurrence: None)
  Receive Date: 20080201
  Receipt Date: 20080111
  Transmission Date: 20080703
  Serious: Yes (Other)
  Sender: FDA-Public Use
  Company Number: IT-BAYER-IT-2007-040576

PATIENT
  Age: 66 Year
  Sex: Female

DRUGS (4)
  1. MAGNEVIST [Suspect]
     Indication: NUCLEAR MAGNETIC RESONANCE IMAGING ABDOMINAL
     Dosage: TOTAL DAILY DOSE: 40 ML
     Route: 042
     Dates: start: 20070216, end: 20070216
  2. ERITROPOIETINA (EPO) [Concomitant]
     Indication: DRUG USE FOR UNKNOWN INDICATION
     Route: 065
  3. FE [Concomitant]
     Indication: DRUG USE FOR UNKNOWN INDICATION
     Route: 065
  4. MIMPARA [Concomitant]
     Indication: DRUG USE FOR UNKNOWN INDICATION
     Route: 065
     Dates: start: 20051208, end: 20070301

REACTIONS (13)
  - CALCINOSIS [None]
  - DRUG INTOLERANCE [None]
  - GASTROINTESTINAL DISORDER [None]
  - HYPERTENSIVE CRISIS [None]
  - MALABSORPTION [None]
  - MOBILITY DECREASED [None]
  - MUSCULOSKELETAL STIFFNESS [None]
  - OSTEOARTHRITIS [None]
  - PAIN [None]
  - PULMONARY OEDEMA [None]
  - SCLERODERMA [None]
  - SOFT TISSUE DISORDER [None]
  - WALKING DISABILITY [None]
